FAERS Safety Report 19087416 (Version 2)
Quarter: 2021Q2

REPORT INFORMATION
  Report Type: Report from Study
  Country: UG (occurrence: UG)
  Receive Date: 20210402
  Receipt Date: 20210514
  Transmission Date: 20210717
  Serious: Yes (Hospitalization)
  Sender: FDA-Public Use
  Company Number: UG-CIPLA LTD.-2021UG02482

PATIENT

DRUGS (3)
  1. ABACAVIR/LAMIVUDINE [Suspect]
     Active Substance: ABACAVIR\LAMIVUDINE
     Indication: HIV INFECTION WHO CLINICAL STAGE IV
     Dosage: 1 DOSAGE FORM, BID, (60MG/30MG BID DAILY)
     Route: 048
     Dates: start: 20160809, end: 20180612
  2. SEPTRIN [Concomitant]
     Active Substance: SULFAMETHOXAZOLE\TRIMETHOPRIM
     Indication: PROPHYLAXIS
     Dosage: 240 MILLIGRAM, QD
     Route: 065
     Dates: start: 20160809
  3. LOPINAVIR/RITONAVIR [Suspect]
     Active Substance: LOPINAVIR\RITONAVIR
     Indication: HIV INFECTION WHO CLINICAL STAGE IV
     Dosage: 1 DOSAGE FORM, BID, (80MG/20MG BID DAILY)
     Route: 048
     Dates: start: 20160809, end: 20180612

REACTIONS (1)
  - Gastroenteritis [Recovered/Resolved]

NARRATIVE: CASE EVENT DATE: 20161001
